FAERS Safety Report 9922963 (Version 1)
Quarter: 2014Q1

REPORT INFORMATION
  Report Type: Spontaneous
  Country: US (occurrence: US)
  Receive Date: 20140225
  Receipt Date: 20140225
  Transmission Date: 20141002
  Serious: No
  Sender: FDA-Public Use
  Company Number: US-TEVA-465270USA

PATIENT
  Age: 48 Year
  Sex: Female
  Weight: 51.3 kg

DRUGS (4)
  1. PLAN B ONE-STEP [Suspect]
     Indication: POST COITAL CONTRACEPTION
     Dosage: 1.5 MILLIGRAM DAILY;
     Route: 048
     Dates: start: 20140204, end: 20140204
  2. SINGULAIR [Concomitant]
     Indication: ASTHMA
     Route: 048
  3. XOPENEX [Concomitant]
     Indication: ASTHMA
     Route: 048
  4. RABEPRAZOLE [Concomitant]
     Indication: GASTROOESOPHAGEAL REFLUX DISEASE

REACTIONS (1)
  - Menstruation irregular [Not Recovered/Not Resolved]
